FAERS Safety Report 5702685-6 (Version None)
Quarter: 2008Q2

REPORT INFORMATION
  Report Type: 
  Country: None (occurrence: None)
  Receive Date: 20080410
  Receipt Date: 20080410
  Transmission Date: 20081010
  Serious: No
  Sender: FDA-Public Use
  Company Number: None

PATIENT
  Sex: Male
  Weight: 99.7913 kg

DRUGS (1)
  1. PHENOBARBITAL TAB [Suspect]
     Indication: CONVULSION
     Dosage: 60 MG/ 3 TIME A DAY PO
     Route: 048
     Dates: start: 20080319, end: 20080409

REACTIONS (3)
  - ANTICONVULSANT DRUG LEVEL DECREASED [None]
  - PRURITUS [None]
  - THERAPEUTIC RESPONSE UNEXPECTED WITH DRUG SUBSTITUTION [None]
